FAERS Safety Report 6833824-1 (Version None)
Quarter: 2010Q3

REPORT INFORMATION
  Report Type: 
  Country: None (occurrence: None)
  Receive Date: 20100712
  Receipt Date: 20070404
  Transmission Date: 20110219
  Serious: No
  Sender: FDA-Public Use
  Company Number: US-PFIZER INC-2007027342

PATIENT
  Sex: Female
  Weight: 59.87 kg

DRUGS (9)
  1. CHANTIX [Suspect]
     Indication: SMOKING CESSATION THERAPY
     Dates: start: 20070330
  2. PRILOSEC [Concomitant]
  3. VITAMINS [Concomitant]
  4. FOLIC ACID [Concomitant]
  5. CYMBALTA [Concomitant]
  6. FISH OIL [Concomitant]
  7. LESCOL [Concomitant]
  8. NIASPAN [Concomitant]
  9. FOSAMAX [Concomitant]

REACTIONS (3)
  - NASOPHARYNGITIS [None]
  - NAUSEA [None]
  - OROPHARYNGEAL PAIN [None]
